FAERS Safety Report 5464431-3 (Version None)
Quarter: 2007Q3

REPORT INFORMATION
  Report Type: 
  Country: None (occurrence: None)
  Receive Date: 20070921
  Receipt Date: 20070920
  Transmission Date: 20080115
  Serious: Yes (Hospitalization, Other)
  Sender: FDA-Public Use
  Company Number: DE-ALLERGAN-0709492US

PATIENT
  Age: 17 Year
  Sex: Male

DRUGS (2)
  1. BOTOX [Suspect]
     Indication: PARESIS
     Dosage: 400 UNITS, UNK
     Dates: start: 20040101
  2. BOTOX [Suspect]
     Dosage: 400 UNITS, UNK

REACTIONS (2)
  - CONVULSION [None]
  - EPILEPSY [None]
